FAERS Safety Report 17013501 (Version 4)
Quarter: 2020Q3

REPORT INFORMATION
  Report Type: Report from Study
  Country: AR (occurrence: AR)
  Receive Date: 20191110
  Receipt Date: 20200929
  Transmission Date: 20201102
  Serious: Yes (Other)
  Sender: FDA-Public Use
  Company Number: PHHY2019AR213812

PATIENT
  Sex: Female

DRUGS (4)
  1. GILENYA [Suspect]
     Active Substance: FINGOLIMOD HYDROCHLORIDE
     Dosage: 0.5 MG, QD
     Route: 065
  2. GILENYA [Suspect]
     Active Substance: FINGOLIMOD HYDROCHLORIDE
     Dosage: 0.5 MG, QD
     Route: 048
     Dates: start: 2019
  3. GILENYA [Suspect]
     Active Substance: FINGOLIMOD HYDROCHLORIDE
     Dosage: 0.5 MG, QD
     Route: 048
     Dates: start: 20190101
  4. GILENYA [Suspect]
     Active Substance: FINGOLIMOD HYDROCHLORIDE
     Indication: MULTIPLE SCLEROSIS
     Dosage: 0.5 MG, QD
     Route: 065
     Dates: start: 201806, end: 201907

REACTIONS (13)
  - Multiple sclerosis relapse [Recovered/Resolved]
  - Musculoskeletal stiffness [Unknown]
  - Gait disturbance [Recovering/Resolving]
  - Muscle rigidity [Unknown]
  - Fear [Unknown]
  - White blood cell count decreased [Unknown]
  - Muscular weakness [Unknown]
  - Muscle spasticity [Unknown]
  - Temperature intolerance [Not Recovered/Not Resolved]
  - Paraesthesia [Unknown]
  - Limb discomfort [Recovering/Resolving]
  - Nervousness [Unknown]
  - Gastritis [Unknown]

NARRATIVE: CASE EVENT DATE: 2019
